FAERS Safety Report 5530529-4 (Version None)
Quarter: 2007Q4

REPORT INFORMATION
  Report Type: 
  Country: None (occurrence: None)
  Receive Date: 20071130
  Receipt Date: 20071128
  Transmission Date: 20080405
  Serious: Yes (Hospitalization)
  Sender: FDA-Public Use
  Company Number: US-BRISTOL-MYERS SQUIBB COMPANY-13856125

PATIENT
  Age: 60 Year
  Sex: Male
  Weight: 88 kg

DRUGS (6)
  1. CETUXIMAB [Suspect]
     Indication: TONSIL CANCER
     Dates: start: 20070717, end: 20070814
  2. CARBOPLATIN [Suspect]
     Indication: TONSIL CANCER
     Dates: start: 20070628, end: 20070814
  3. TAXOL [Suspect]
     Indication: TONSIL CANCER
     Dates: start: 20070710
  4. DONEPEZIL HCL [Concomitant]
  5. AUGMENTIN '250' [Concomitant]
  6. MINOCYCLINE HCL [Concomitant]

REACTIONS (4)
  - JAW FRACTURE [None]
  - PYREXIA [None]
  - SINUS DISORDER [None]
  - TOOTH EXTRACTION [None]
